FAERS Safety Report 21898361 (Version 1)
Quarter: 2023Q1

REPORT INFORMATION
  Report Type: Report from Study
  Country: KR (occurrence: KR)
  Receive Date: 20230123
  Receipt Date: 20230123
  Transmission Date: 20230417
  Serious: Yes (Other)
  Sender: FDA-Public Use
  Company Number: KR-MYLANLABS-2023M1005332

PATIENT
  Sex: Male
  Weight: 72.5 kg

DRUGS (36)
  1. TRASTUZUMAB [Suspect]
     Active Substance: TRASTUZUMAB
     Indication: HER2 positive breast cancer
     Dosage: 400 MILLIGRAM
     Route: 042
     Dates: start: 20200218, end: 20200218
  2. TRASTUZUMAB [Suspect]
     Active Substance: TRASTUZUMAB
     Dosage: 400 MILLIGRAM
     Route: 042
     Dates: start: 20200311, end: 20200311
  3. TRASTUZUMAB [Suspect]
     Active Substance: TRASTUZUMAB
     Dosage: 400 MILLIGRAM
     Route: 042
     Dates: start: 20200331, end: 20200331
  4. TRASTUZUMAB [Suspect]
     Active Substance: TRASTUZUMAB
     Dosage: 400 MILLIGRAM
     Route: 042
     Dates: start: 20200421, end: 20200421
  5. TRASTUZUMAB [Suspect]
     Active Substance: TRASTUZUMAB
     Dosage: 400 MILLIGRAM
     Route: 042
     Dates: start: 20200528, end: 20200528
  6. TRASTUZUMAB [Suspect]
     Active Substance: TRASTUZUMAB
     Dosage: 400 MILLIGRAM
     Route: 042
     Dates: start: 20200618, end: 20200618
  7. TRASTUZUMAB [Suspect]
     Active Substance: TRASTUZUMAB
     Dosage: 410 MILLIGRAM
     Route: 042
     Dates: start: 20190813, end: 20190813
  8. TRASTUZUMAB [Suspect]
     Active Substance: TRASTUZUMAB
     Dosage: 410 MILLIGRAM
     Route: 042
     Dates: start: 20190903, end: 20190903
  9. TRASTUZUMAB [Suspect]
     Active Substance: TRASTUZUMAB
     Dosage: 410 MILLIGRAM
     Route: 042
     Dates: start: 20190924, end: 20190924
  10. TRASTUZUMAB [Suspect]
     Active Substance: TRASTUZUMAB
     Dosage: 410 MILLIGRAM
     Route: 042
     Dates: start: 20191015, end: 20191015
  11. TRASTUZUMAB [Suspect]
     Active Substance: TRASTUZUMAB
     Dosage: 410 MILLIGRAM
     Route: 042
     Dates: start: 20191105, end: 20191105
  12. TRASTUZUMAB [Suspect]
     Active Substance: TRASTUZUMAB
     Dosage: 410 MILLIGRAM
     Route: 042
     Dates: start: 20191126, end: 20191126
  13. TRASTUZUMAB [Suspect]
     Active Substance: TRASTUZUMAB
     Dosage: 410 MILLIGRAM
     Route: 042
     Dates: start: 20191217, end: 20191217
  14. TRASTUZUMAB [Suspect]
     Active Substance: TRASTUZUMAB
     Dosage: 410 MILLIGRAM
     Route: 042
     Dates: start: 20200107, end: 20200107
  15. TRASTUZUMAB [Suspect]
     Active Substance: TRASTUZUMAB
     Dosage: 410 MILLIGRAM
     Route: 042
     Dates: start: 20200128, end: 20200128
  16. TRASTUZUMAB [Suspect]
     Active Substance: TRASTUZUMAB
     Dosage: 420 MILLIGRAM
     Route: 042
     Dates: start: 20190723, end: 20190723
  17. TRASTUZUMAB [Suspect]
     Active Substance: TRASTUZUMAB
     Dosage: 560 MILLIGRAM
     Route: 042
     Dates: start: 20190702, end: 20190702
  18. XANAX [Concomitant]
     Active Substance: ALPRAZOLAM
     Indication: Insomnia
     Dosage: UNK
     Route: 065
     Dates: start: 20190702, end: 20190715
  19. LORAZEPAM [Concomitant]
     Active Substance: LORAZEPAM
     Indication: Insomnia
     Dosage: UNK
     Route: 065
     Dates: start: 20190702, end: 20190715
  20. SACCHAROMYCES CEREVISIAE [Concomitant]
     Active Substance: SACCHAROMYCES CEREVISIAE
     Indication: Prophylaxis against diarrhoea
     Dosage: UNK
     Route: 048
     Dates: start: 20191015
  21. IBUPROFEN [Concomitant]
     Active Substance: IBUPROFEN
     Indication: Pain prophylaxis
     Dosage: UNK
     Route: 048
     Dates: start: 20190814, end: 20190821
  22. CIPROFLOXACIN HYDROCHLORIDE [Concomitant]
     Active Substance: CIPROFLOXACIN HYDROCHLORIDE
     Indication: Infection prophylaxis
     Dosage: UNK
     Route: 048
     Dates: start: 20190418, end: 20191001
  23. DEXIBUPROFEN [Concomitant]
     Active Substance: DEXIBUPROFEN
     Indication: Pain prophylaxis
     Dosage: UNK
     Route: 048
     Dates: start: 20181219, end: 20190102
  24. PROPACETAMOL HYDROCHLORIDE [Concomitant]
     Active Substance: PROPACETAMOL HYDROCHLORIDE
     Indication: Pain prophylaxis
     Dosage: UNK
     Route: 042
     Dates: start: 20190702, end: 20190702
  25. MOSAPRIDE CITRATE DIHYDRATE [Concomitant]
     Active Substance: MOSAPRIDE CITRATE DIHYDRATE
     Indication: Dyspepsia
     Dosage: UNK
     Route: 048
     Dates: start: 20190115
  26. FUROSEMIDE [Concomitant]
     Active Substance: FUROSEMIDE
     Indication: Lymphoedema
     Dosage: UNK
     Route: 042
     Dates: start: 20190702, end: 20190703
  27. MAGNESIUM HYDROXIDE [Concomitant]
     Active Substance: MAGNESIUM HYDROXIDE
     Indication: Gastrointestinal disorder prophylaxis
     Dosage: UNK
     Route: 048
     Dates: start: 20190320
  28. LAFUTIDINE [Concomitant]
     Active Substance: LAFUTIDINE
     Indication: Gastrointestinal disorder prophylaxis
     Dosage: UNK
     Route: 048
     Dates: start: 20190115
  29. CALCIUM POLYCARBOPHIL [Concomitant]
     Active Substance: CALCIUM POLYCARBOPHIL
     Indication: Gastrointestinal disorder prophylaxis
     Dosage: UNK
     Route: 048
     Dates: start: 20190522, end: 20200505
  30. CHOLECALCIFEROL [Concomitant]
     Active Substance: CHOLECALCIFEROL
     Indication: Nutritional supplementation
     Dosage: UNK
     Route: 042
     Dates: start: 20200331, end: 20200618
  31. ZINC SULFATE [Concomitant]
     Active Substance: ZINC SULFATE
     Indication: Nutritional supplementation
     Dosage: UNK
     Route: 048
     Dates: start: 20200525, end: 20200528
  32. AMBROXOL HYDROCHLORIDE [Concomitant]
     Active Substance: AMBROXOL HYDROCHLORIDE
     Indication: Prophylaxis
     Dosage: UNK
     Route: 048
     Dates: start: 20191106, end: 20191108
  33. PSEUDOEPHEDRINE HYDROCHLORIDE\TRIPROLIDINE HYDROCHLORIDE [Concomitant]
     Active Substance: PSEUDOEPHEDRINE HYDROCHLORIDE\TRIPROLIDINE HYDROCHLORIDE
     Indication: Prophylaxis
     Dosage: UNK
     Route: 048
     Dates: start: 20190813, end: 20190820
  34. PSEUDOEPHEDRINE HYDROCHLORIDE\TRIPROLIDINE HYDROCHLORIDE [Concomitant]
     Active Substance: PSEUDOEPHEDRINE HYDROCHLORIDE\TRIPROLIDINE HYDROCHLORIDE
     Dosage: UNK
     Route: 048
     Dates: start: 20190903, end: 20190910
  35. PSEUDOEPHEDRINE HYDROCHLORIDE\TRIPROLIDINE HYDROCHLORIDE [Concomitant]
     Active Substance: PSEUDOEPHEDRINE HYDROCHLORIDE\TRIPROLIDINE HYDROCHLORIDE
     Dosage: UNK
     Route: 048
     Dates: start: 20190924, end: 20191001
  36. FUROSEMIDE [Concomitant]
     Active Substance: FUROSEMIDE
     Indication: Lymphoedema
     Dosage: UNK
     Route: 048
     Dates: start: 20190612, end: 20190813

REACTIONS (10)
  - Pulmonary hypertension [Recovering/Resolving]
  - Oedema [Recovering/Resolving]
  - Headache [Recovered/Resolved]
  - Procedural pain [Recovering/Resolving]
  - Seroma [Recovered/Resolved]
  - Erythema [Recovered/Resolved]
  - Upper respiratory tract infection [Recovered/Resolved]
  - Arthralgia [Recovered/Resolved]
  - Cough [Recovered/Resolved]
  - Osteoporosis [Recovering/Resolving]

NARRATIVE: CASE EVENT DATE: 20190528
